FAERS Safety Report 7982016-1 (Version None)
Quarter: 2011Q4

REPORT INFORMATION
  Report Type: 
  Country: None (occurrence: None)
  Receive Date: 20111213
  Receipt Date: 20111205
  Transmission Date: 20120403
  Serious: Yes (Hospitalization, Other)
  Sender: FDA-Public Use
  Company Number: AUR-APL-2010-02085

PATIENT
  Age: 51 Year
  Sex: Female
  Weight: 60.77 kg

DRUGS (15)
  1. TEGRETOL [Suspect]
     Indication: CONVULSION
     Dosage: 600 MG (200 MG, 3 IN 1 D), UNKNOWN
  2. CHANTIX [Suspect]
     Indication: SMOKING CESSATION THERAPY
     Dosage: 0.5 MG (0.5 MG, 1 IN 1 D), ORAL 2 MG (1 MG, 2 IN 1 D), ORAL 0.5 MG (0.5 MG, 1 IN 1 D), ORAL 2 MG (1
     Route: 048
     Dates: start: 20070101, end: 20070101
  3. CHANTIX [Suspect]
     Indication: SMOKING CESSATION THERAPY
     Dosage: 0.5 MG (0.5 MG, 1 IN 1 D), ORAL 2 MG (1 MG, 2 IN 1 D), ORAL 0.5 MG (0.5 MG, 1 IN 1 D), ORAL 2 MG (1
     Route: 048
     Dates: start: 20070101, end: 20070101
  4. CHANTIX [Suspect]
     Indication: SMOKING CESSATION THERAPY
     Dosage: 0.5 MG (0.5 MG, 1 IN 1 D), ORAL 2 MG (1 MG, 2 IN 1 D), ORAL 0.5 MG (0.5 MG, 1 IN 1 D), ORAL 2 MG (1
     Route: 048
     Dates: start: 20100519, end: 20100101
  5. ASPIRIN [Concomitant]
  6. LORAZEPAM [Concomitant]
  7. PROMETHAZINE HYDROCHLORIDE [Concomitant]
  8. PREMARIN [Concomitant]
  9. NABUMETONE [Concomitant]
  10. CARISOPRODOL [Concomitant]
  11. PROPOXYPHENE NAPSYLATE W/ACETAMINOPHEN (PROPACET) [Concomitant]
  12. MIRAPEX [Concomitant]
  13. TOPAMAX [Suspect]
     Indication: CONVULSION
     Dosage: 400 MG (200 MG, 2 IN 1 D), UNKNOWN
  14. SINGULAIR [Concomitant]
  15. XOPENEX [Concomitant]

REACTIONS (23)
  - SUICIDAL IDEATION [None]
  - ASTHENIA [None]
  - COUGH [None]
  - NAUSEA [None]
  - BRONCHITIS BACTERIAL [None]
  - FIBROMYALGIA [None]
  - VOMITING [None]
  - DRUG EFFECT DECREASED [None]
  - GALLBLADDER DISORDER [None]
  - OSTEOPENIA [None]
  - CONVULSION [None]
  - VULVOVAGINAL CANDIDIASIS [None]
  - INHIBITORY DRUG INTERACTION [None]
  - AMAUROSIS FUGAX [None]
  - AORTIC STENOSIS [None]
  - PALPITATIONS [None]
  - GASTROOESOPHAGEAL REFLUX DISEASE [None]
  - MIGRAINE [None]
  - ANXIETY [None]
  - RESTLESS LEGS SYNDROME [None]
  - DEPRESSION [None]
  - COLONIC STENOSIS [None]
  - DEHYDRATION [None]
